FAERS Safety Report 7647476-4 (Version None)
Quarter: 2011Q3

REPORT INFORMATION
  Report Type: 
  Country: None (occurrence: None)
  Receive Date: 20110801
  Receipt Date: 20110714
  Transmission Date: 20111222
  Serious: Yes (Hospitalization)
  Sender: FDA-Public Use
  Company Number: US-GLAXOSMITHKLINE-A0834242A

PATIENT
  Age: 66 Year
  Sex: Male
  Weight: 165.9 kg

DRUGS (1)
  1. AVANDIA [Suspect]
     Indication: DIABETES MELLITUS
     Dosage: 4MG PER DAY
     Route: 048
     Dates: start: 20070101, end: 20090301

REACTIONS (2)
  - LACUNAR INFARCTION [None]
  - CEREBROVASCULAR ACCIDENT [None]
